FAERS Safety Report 8443711 (Version 5)
Quarter: 2013Q1

REPORT INFORMATION
  Report Type: Spontaneous
  Country: BR (occurrence: BR)
  Receive Date: 20120306
  Receipt Date: 20130111
  Transmission Date: 20140127
  Serious: Yes (Other)
  Sender: FDA-Public Use
  Company Number: PHHY2012BR017179

PATIENT
  Sex: Female

DRUGS (8)
  1. DIOVAN [Suspect]
     Indication: HYPERTENSION
     Dosage: 80 MG, ONE TABLET DAILY
     Route: 048
     Dates: start: 200906
  2. DIOVAN [Suspect]
     Dosage: 80 MG, TWO TABLETS DAILY
     Dates: start: 20120210
  3. DIOVAN [Suspect]
     Dosage: 160 MG, UNK
  4. DIOVAN HCT [Suspect]
     Indication: BLOOD PRESSURE
     Dosage: UNK UKN(320/12.5 MG), UNK
  5. MELOXICAM [Concomitant]
     Indication: ANTIINFLAMMATORY THERAPY
     Dosage: 7.5 MG, UNK
     Route: 048
  6. SIMVASTATIN [Concomitant]
     Indication: BLOOD CHOLESTEROL
     Dosage: 40 MG, DAILY
     Route: 048
  7. HYDROXYCHLOROQUINE SULFATE [Concomitant]
     Dosage: 400 MG, ONE TABLET DAILY
     Route: 048
  8. METFORMIN [Concomitant]
     Indication: DIABETES MELLITUS
     Dosage: 800 MG, DONE TABLET DAILY
     Route: 048

REACTIONS (13)
  - Cardiac valve disease [Unknown]
  - Hypertension [Recovering/Resolving]
  - Arthritis [Recovering/Resolving]
  - Osteoarthritis [Recovering/Resolving]
  - Rheumatic disorder [Recovering/Resolving]
  - Calcinosis [Recovering/Resolving]
  - Osteoporosis [Recovering/Resolving]
  - Emotional disorder [Recovering/Resolving]
  - Anxiety [Recovering/Resolving]
  - Tendonitis [Recovering/Resolving]
  - Oedema peripheral [Recovering/Resolving]
  - Arthralgia [Recovering/Resolving]
  - Blood pressure inadequately controlled [Recovered/Resolved]
